FAERS Safety Report 4421428-X (Version None)
Quarter: 2004Q3

REPORT INFORMATION
  Report Type: 
  Country: None (occurrence: None)
  Receive Date: 20040709
  Receipt Date: 20040426
  Transmission Date: 20050211
  Serious: No
  Sender: FDA-Public Use
  Company Number: 2004S1000084

PATIENT
  Age: 48 Year
  Sex: Female

DRUGS (8)
  1. CUBICIN [Suspect]
     Indication: ABSCESS
     Dosage: 500 MG; QD; IV
     Route: 042
     Dates: start: 20040423, end: 20040512
  2. CUBICIN [Suspect]
     Indication: STAPHYLOCOCCAL INFECTION
     Dosage: 500 MG; QD; IV
     Route: 042
     Dates: start: 20040423, end: 20040512
  3. VANCOMYCIN [Concomitant]
  4. AROMASIN [Concomitant]
  5. DILANTIN [Concomitant]
  6. TEMASEPAM [Concomitant]
  7. VICODIN ES [Concomitant]
  8. ZOLOFT [Concomitant]

REACTIONS (1)
  - BLINDNESS TRANSIENT [None]
